FAERS Safety Report 9160172 (Version 1)
Quarter: 2013Q1

REPORT INFORMATION
  Report Type: Spontaneous
  Country: GE (occurrence: GE)
  Receive Date: 20130313
  Receipt Date: 20130313
  Transmission Date: 20140127
  Serious: Yes (Other)
  Sender: FDA-Public Use
  Company Number: GE-ROCHE-1197783

PATIENT
  Age: 26 Year
  Sex: Female

DRUGS (3)
  1. KETOROLAC [Suspect]
     Indication: PANCREATITIS
     Route: 065
  2. DICLOFENAC [Concomitant]
  3. METAMIZOLE [Concomitant]

REACTIONS (3)
  - Polyneuropathy [Recovering/Resolving]
  - Abortion spontaneous [Unknown]
  - Exposure during pregnancy [Unknown]
